FAERS Safety Report 13122097 (Version 2)
Quarter: 2017Q1

REPORT INFORMATION
  Report Type: Report from Study
  Country: None (occurrence: US)
  Receive Date: 20170117
  Receipt Date: 20170301
  Transmission Date: 20170428
  Serious: Yes (Hospitalization, Other)
  Sender: FDA-Public Use
  Company Number: US-ABBVIE-17K-163-1835305-00

PATIENT
  Sex: Male
  Weight: 72.64 kg

DRUGS (6)
  1. HUMIRA [Suspect]
     Active Substance: ADALIMUMAB
     Route: 058
     Dates: start: 20170207
  2. SIMVASTATIN. [Concomitant]
     Active Substance: SIMVASTATIN
     Indication: BLOOD CHOLESTEROL INCREASED
  3. ATENOLOL. [Concomitant]
     Active Substance: ATENOLOL
     Indication: HYPERTENSION
  4. TAMSULOSIN [Concomitant]
     Active Substance: TAMSULOSIN
     Indication: PROSTATOMEGALY
  5. VITAMIN D [Concomitant]
     Active Substance: CHOLECALCIFEROL
     Indication: RENAL LITHIASIS PROPHYLAXIS
  6. HUMIRA [Suspect]
     Active Substance: ADALIMUMAB
     Indication: CROHN^S DISEASE
     Route: 058
     Dates: start: 201409, end: 201612

REACTIONS (9)
  - Weight decreased [Recovered/Resolved]
  - Fistula discharge [Recovered/Resolved]
  - Fistula discharge [Not Recovered/Not Resolved]
  - Fall [Recovered/Resolved]
  - Gastrointestinal fistula [Recovered/Resolved]
  - Concussion [Recovered/Resolved]
  - Cholelithiasis [Recovered/Resolved]
  - Hypophagia [Recovered/Resolved]
  - Surgical failure [Not Recovered/Not Resolved]

NARRATIVE: CASE EVENT DATE: 2016
